FAERS Safety Report 11652984 (Version 1)
Quarter: 2015Q4

REPORT INFORMATION
  Report Type: Spontaneous
  Country: US (occurrence: US)
  Receive Date: 20151022
  Receipt Date: 20151022
  Transmission Date: 20160304
  Serious: Yes (Hospitalization, Other)
  Sender: FDA-Public Use
  Company Number: US-PFIZER INC-2005115349

PATIENT
  Age: 78 Year
  Sex: Male
  Weight: 83.91 kg

DRUGS (24)
  1. LASIX [Concomitant]
     Active Substance: FUROSEMIDE
     Route: 048
  2. ZOCOR [Concomitant]
     Active Substance: SIMVASTATIN
     Route: 048
  3. AVANDIA [Interacting]
     Active Substance: ROSIGLITAZONE MALEATE
     Indication: DIABETES MELLITUS
     Dosage: 4 MG, DAILY
     Route: 048
     Dates: end: 2005
  4. ATROVENT [Concomitant]
     Active Substance: IPRATROPIUM BROMIDE
  5. SODIUM [Concomitant]
     Active Substance: SODIUM
     Route: 048
  6. LEVOXYL [Concomitant]
     Active Substance: LEVOTHYROXINE SODIUM
     Route: 048
  7. ALDACTONE [Concomitant]
     Active Substance: SPIRONOLACTONE
     Route: 048
  8. PROTONIX [Concomitant]
     Active Substance: PANTOPRAZOLE SODIUM
     Route: 048
  9. MYCELEX TROCHE [Concomitant]
     Route: 048
  10. TYLENOL [Concomitant]
     Active Substance: ACETAMINOPHEN
     Route: 048
  11. ZYVOX [Suspect]
     Active Substance: LINEZOLID
     Indication: STAPHYLOCOCCAL INFECTION
     Dosage: 600 MG, 2X/WEEK
     Route: 048
     Dates: start: 2005, end: 20050805
  12. AMARYL [Interacting]
     Active Substance: GLIMEPIRIDE
     Indication: DIABETES MELLITUS
     Dosage: 2 MG, DAILY
     Route: 048
     Dates: end: 20050807
  13. ALLOPURINOL. [Concomitant]
     Active Substance: ALLOPURINOL
     Route: 048
  14. METHOTREXATE [Concomitant]
     Active Substance: METHOTREXATE
  15. ALBUTEROL /00139501/ [Concomitant]
     Active Substance: ALBUTEROL
     Route: 048
  16. PREDNISONE. [Concomitant]
     Active Substance: PREDNISONE
     Route: 048
  17. ATENOLOL. [Concomitant]
     Active Substance: ATENOLOL
     Dosage: PRN
     Route: 048
  18. CHLORASEPTIC SORE THROAT [Concomitant]
     Active Substance: PHENOL
     Route: 048
  19. FOLIC ACID. [Concomitant]
     Active Substance: FOLIC ACID
     Route: 048
  20. COREG [Concomitant]
     Active Substance: CARVEDILOL
     Route: 048
  21. CLAFORAN [Concomitant]
     Active Substance: CEFOTAXIME SODIUM
     Route: 042
  22. SYNTHROID [Concomitant]
     Active Substance: LEVOTHYROXINE SODIUM
  23. NEURONTIN [Concomitant]
     Active Substance: GABAPENTIN
     Dosage: TID
     Route: 048
  24. VICODIN [Concomitant]
     Active Substance: ACETAMINOPHEN\HYDROCODONE BITARTRATE
     Route: 048

REACTIONS (4)
  - Hypoglycaemia [Recovered/Resolved]
  - Blood creatinine increased [Unknown]
  - Thrombocytopenia [Not Recovered/Not Resolved]
  - Drug interaction [Unknown]

NARRATIVE: CASE EVENT DATE: 2005
